FAERS Safety Report 4500219-5 (Version None)
Quarter: 2004Q4

REPORT INFORMATION
  Report Type: 
  Country: None (occurrence: None)
  Receive Date: 20041109
  Receipt Date: 20041028
  Transmission Date: 20050328
  Serious: Yes (Life-Threatening, Hospitalization)
  Sender: FDA-Public Use
  Company Number: 200410426BYL

PATIENT
  Age: 81 Year
  Sex: Female
  Weight: 68 kg

DRUGS (4)
  1. PLASBUMIN-25 [Suspect]
     Indication: HYPOPROTEINAEMIA
     Dosage: 100 ML, TOTAL DAILY, INTRAVENOUS
     Route: 042
     Dates: start: 20040804, end: 20040807
  2. AMINOTRIPA 1 [Concomitant]
  3. PENTCILLIN [Concomitant]
  4. ZANAC [Concomitant]

REACTIONS (5)
  - DRUG ERUPTION [None]
  - EXANTHEM [None]
  - GENERALISED ERYTHEMA [None]
  - TOXIC SKIN ERUPTION [None]
  - URTICARIA [None]
